FAERS Safety Report 8299376 (Version 2)
Quarter: 2012Q4

REPORT INFORMATION
  Report Type: 
  Country: US (occurrence: US)
  Receive Date: 20111219
  Receipt Date: 20121003
  Transmission Date: 20130627
  Serious: Yes (Other)
  Sender: FDA-Public Use
  Company Number: US-ROCHE-792653

PATIENT
  Age: 15 Year
  Sex: Male
  Weight: 54.48 kg

DRUGS (1)
  1. ACCUTANE [Suspect]
     Indication: ACNE
     Route: 065
     Dates: start: 19970101, end: 19980331

REACTIONS (12)
  - Crohn^s disease [Unknown]
  - Inflammatory bowel disease [Unknown]
  - Impaired healing [Unknown]
  - Gastrooesophageal reflux disease [Unknown]
  - Arthritis [Unknown]
  - Depression [Unknown]
  - Anal fissure [Unknown]
  - Perirectal abscess [Unknown]
  - Irritable bowel syndrome [Unknown]
  - Dry skin [Unknown]
  - Blood cholesterol increased [Unknown]
  - Blood triglycerides increased [Unknown]
